FAERS Safety Report 24301481 (Version 2)
Quarter: 2025Q3

REPORT INFORMATION
  Report Type: Report from Study
  Country: ZA (occurrence: ZA)
  Receive Date: 20240910
  Receipt Date: 20250731
  Transmission Date: 20251020
  Serious: Yes (Death)
  Sender: ABBVIE
  Company Number: ZA-ABBOTT-2024A-1385823

PATIENT
  Age: 78 Year
  Sex: Female

DRUGS (23)
  1. CREON [Suspect]
     Active Substance: PANCRELIPASE AMYLASE\PANCRELIPASE LIPASE\PANCRELIPASE PROTEASE
     Indication: Pancreatic failure
     Dosage: 300 MG ONE CAPSULE TWICE A DAY,  25000
     Route: 048
  2. ACETAMINOPHEN\TRAMADOL [Concomitant]
     Active Substance: ACETAMINOPHEN\TRAMADOL
     Indication: Pain
     Dosage: ONE TABLET TWICE A DAY
     Route: 048
  3. ACETAMINOPHEN\TRAMADOL [Concomitant]
     Active Substance: ACETAMINOPHEN\TRAMADOL
     Indication: Pain
     Dosage: TAKE ONE TABLET TWICE A DAY
     Route: 048
  4. ACETAMINOPHEN\TRAMADOL [Concomitant]
     Active Substance: ACETAMINOPHEN\TRAMADOL
     Indication: Pain
     Route: 048
  5. RIVAROXABAN [Concomitant]
     Active Substance: RIVAROXABAN
     Indication: Blood disorder prophylaxis
     Dosage: 10 MG TAKE ONE TABLET DAILY
     Route: 048
  6. RIVAROXABAN [Concomitant]
     Active Substance: RIVAROXABAN
     Indication: Blood disorder prophylaxis
     Dosage: 20 MG TAKE ONE TABLET IN THE MORNING
     Route: 048
  7. Cifran [Concomitant]
     Indication: Product used for unknown indication
     Dosage: 500 MG TAKE ONE TABLET TWICE A DAY
     Route: 048
  8. Medazine [Concomitant]
     Indication: Nausea
     Dosage: 50 MG TAKE ONE TABLET THREE TIMES A DAY
     Route: 048
  9. VESICARE [Concomitant]
     Active Substance: SOLIFENACIN SUCCINATE
     Indication: Hypertonic bladder
     Dosage: 5 MG ONE TABLET DAILY
     Route: 048
  10. ESOMEPRAZOLE [Concomitant]
     Active Substance: ESOMEPRAZOLE
     Indication: Gastrooesophageal reflux disease
     Dosage: 40 MG TAKE ONE TABLET AT NIGHT
     Route: 048
  11. Grantryl [Concomitant]
     Indication: Product used for unknown indication
     Dosage: 1 MG ONE TABLET TWICE A DAY
     Route: 048
  12. FLURBIPROFEN [Concomitant]
     Active Substance: FLURBIPROFEN
     Indication: Product used for unknown indication
     Route: 061
  13. GLUCOPHAGE XR [Concomitant]
     Active Substance: METFORMIN HYDROCHLORIDE
     Indication: Diabetes mellitus
     Dosage: 1000 MG TAKE ONE TABLET TWICE A DAY
     Route: 048
  14. AMLODIPINE BESYLATE [Concomitant]
     Active Substance: AMLODIPINE BESYLATE
     Indication: Hypertension
     Dosage: 10 MG TAKE ONE TABLET IN THE MORNING
     Route: 048
  15. Lipogen [Concomitant]
     Indication: Blood cholesterol abnormal
     Dosage: 20 MG ONE TABLET DAILY
     Route: 048
  16. POTASSIUM CHLORIDE [Concomitant]
     Active Substance: POTASSIUM CHLORIDE
     Indication: Hypokalaemia
     Dosage: 600 MG TWO TABLETS DAILY
     Route: 048
  17. METFORMIN HYDROCHLORIDE [Concomitant]
     Active Substance: METFORMIN HYDROCHLORIDE
     Indication: Diabetes mellitus
     Dosage: 1000 MG TAKE ONE TABLET TWICE A DAY?XR
     Route: 048
  18. XRYLIX [Concomitant]
     Active Substance: DICLOFENAC SODIUM
     Indication: Diabetes mellitus
     Dosage: 1000 MG ONE TABLET TWICE A DAY
     Route: 048
  19. Granicip [Concomitant]
     Indication: Product used for unknown indication
     Dosage: 1 MG TAKE ONE TABLET TWICE A DAY
     Route: 048
  20. ERGOCALCIFEROL [Concomitant]
     Active Substance: ERGOCALCIFEROL
     Indication: Product used for unknown indication
     Dosage: 50000 IU TAKE ONE TABLET PER WEEK
     Route: 048
  21. HUMALOG MIX75/25 [Concomitant]
     Active Substance: INSULIN LISPRO
     Indication: Diabetes mellitus
     Dosage: 100 IU 16 UNITS AT NIGHT?KWIKPEN
     Route: 048
  22. METOCLOPRAMIDE HYDROCHLORIDE [Concomitant]
     Active Substance: METOCLOPRAMIDE HYDROCHLORIDE
     Indication: Product used for unknown indication
     Dosage: 10 MG ONE TABLET THREE TIMES A DAY
     Route: 048
  23. GLUCAGEN HYPOKIT [Concomitant]
     Active Substance: GLUCAGON HYDROCHLORIDE
     Indication: Hypoglycaemia
     Route: 048

REACTIONS (2)
  - Neoplasm malignant [Fatal]
  - Illness [Unknown]
